FAERS Safety Report 6314082-3 (Version None)
Quarter: 2009Q3

REPORT INFORMATION
  Report Type: 
  Country: None (occurrence: None)
  Receive Date: 20090814
  Receipt Date: 20090804
  Transmission Date: 20100115
  Serious: Yes (Hospitalization)
  Sender: FDA-Public Use
  Company Number: 001268

PATIENT
  Age: 39 Year
  Sex: Male

DRUGS (10)
  1. LACOSAMIDE [Suspect]
     Indication: EPILEPSY
     Dosage: 200 MG BID, ORAL ; 50 MG QD ORAL
     Route: 048
     Dates: start: 20050822
  2. CARBAMAZEPINE [Concomitant]
  3. CLOBAZAM (CLOBAZAM) [Concomitant]
  4. EMOVAT (CLOBETASONE BUTYRATE) [Concomitant]
  5. PARACETAMOL (PARACETAMOL) [Concomitant]
  6. DIAZEPAM [Concomitant]
  7. PROPOFOL [Concomitant]
  8. VENOFUNDIN [Concomitant]
  9. RINGER'S(SODIUM CHLORIDE COMPOUND INJECTION) [Concomitant]
  10. ZINACEF [Concomitant]

REACTIONS (2)
  - CONVULSION [None]
  - IMPLANT SITE INFECTION [None]
